FAERS Safety Report 8029910-3 (Version None)
Quarter: 2011Q4

REPORT INFORMATION
  Report Type: 
  Country: None (occurrence: None)
  Receive Date: 20111130
  Receipt Date: 20110531
  Transmission Date: 20120403
  Serious: Yes (Hospitalization, Other)
  Sender: FDA-Public Use
  Company Number: US201105002261

PATIENT
  Age: 54 Year
  Sex: Female
  Weight: 98.9 kg

DRUGS (7)
  1. LANTUS [Concomitant]
  2. BYETTA [Suspect]
     Indication: TYPE 2 DIABETES MELLITUS
     Dosage: 5 UG, BID, SUBCUTANEOUS
     Route: 058
     Dates: start: 20100201, end: 20110124
  3. FISH OIL (FISH OIL) [Concomitant]
  4. HUMALOG [Concomitant]
  5. SIMVASTATIN [Concomitant]
  6. LEVOXYL [Concomitant]
  7. ASPIRIN [Concomitant]

REACTIONS (3)
  - PANCREATITIS ACUTE [None]
  - WEIGHT DECREASED [None]
  - OFF LABEL USE [None]
